FAERS Safety Report 15677027 (Version 1)
Quarter: 2018Q4

REPORT INFORMATION
  Report Type: Spontaneous
  Country: ES (occurrence: ES)
  Receive Date: 20181130
  Receipt Date: 20181130
  Transmission Date: 20190205
  Serious: Yes (Hospitalization)
  Sender: FDA-Public Use
  Company Number: ES-TEVA-2018-ES-980682

PATIENT
  Age: 29 Year
  Sex: Female

DRUGS (2)
  1. IBUPROFENO (1769A) [Suspect]
     Active Substance: IBUPROFEN
     Indication: MIGRAINE
     Route: 048
     Dates: start: 20131217
  2. IMIGRAN NEO 50 MG COMPRIMIDOS RECUBIERTOS CON PELICULA, 4 COMPRIMIDOS [Concomitant]
     Indication: TORTICOLLIS
     Route: 048
     Dates: start: 20180424

REACTIONS (2)
  - Gastritis erosive [Recovered/Resolved]
  - Abdominal distension [Recovered/Resolved]

NARRATIVE: CASE EVENT DATE: 20180717
